FAERS Safety Report 20240934 (Version 1)
Quarter: 2021Q4

REPORT INFORMATION
  Report Type: Spontaneous
  Country: US (occurrence: None)
  Receive Date: 20211228
  Receipt Date: 20211228
  Transmission Date: 20220303
  Serious: No
  Sender: FDA-Public Use
  Company Number: None

PATIENT
  Age: 0 Day
  Sex: Male

DRUGS (1)
  1. CASIRIVIMAB\IMDEVIMAB [Suspect]
     Active Substance: CASIRIVIMAB\IMDEVIMAB
     Indication: COVID-19
     Dosage: FREQUENCY : ONCE;?
     Route: 042

REACTIONS (7)
  - Chest discomfort [None]
  - Nausea [None]
  - Micturition urgency [None]
  - Tremor [None]
  - Vasoconstriction [None]
  - Nervousness [None]
  - Blood pressure increased [None]

NARRATIVE: CASE EVENT DATE: 20211209
